FAERS Safety Report 4864335-0 (Version None)
Quarter: 2005Q4

REPORT INFORMATION
  Report Type: 
  Country: None (occurrence: None)
  Receive Date: 20051222
  Receipt Date: 20051216
  Transmission Date: 20060501
  Serious: Yes (Hospitalization)
  Sender: FDA-Public Use
  Company Number: JP-JNJFOC-20051101655

PATIENT
  Sex: Male

DRUGS (1)
  1. ITRIZOLE [Suspect]
     Indication: NAIL TINEA
     Route: 048
     Dates: start: 20051024, end: 20051030

REACTIONS (5)
  - HEPATIC FUNCTION ABNORMAL [None]
  - OCULAR HYPERAEMIA [None]
  - PYREXIA [None]
  - RASH GENERALISED [None]
  - RENAL IMPAIRMENT [None]
